FAERS Safety Report 4877126-1 (Version None)
Quarter: 2005Q4

REPORT INFORMATION
  Report Type: 
  Country: None (occurrence: None)
  Receive Date: 20051206
  Receipt Date: 20050809
  Transmission Date: 20060501
  Serious: No
  Sender: FDA-Public Use
  Company Number: USA0508105023

PATIENT
  Age: 73 Year
  Sex: Male

DRUGS (7)
  1. CYMBALTA [Suspect]
     Indication: DIABETIC NEUROPATHY
     Dosage: 60 MG DAY
     Dates: start: 20050701
  2. FUROSEMIDE [Concomitant]
  3. PACERONE [Concomitant]
  4. VITAMIN K [Concomitant]
  5. MONOPRIL [Concomitant]
  6. COUMADIN [Concomitant]
  7. METOPROLOL [Concomitant]

REACTIONS (1)
  - HALLUCINATION [None]
